FAERS Safety Report 4717610-4 (Version None)
Quarter: 2005Q3

REPORT INFORMATION
  Report Type: 
  Country: None (occurrence: None)
  Receive Date: 20050712
  Receipt Date: 20050331
  Transmission Date: 20060218
  Serious: No
  Sender: FDA-Public Use
  Company Number: 2005S1000057

PATIENT
  Sex: Female

DRUGS (4)
  1. CUBICIN [Suspect]
     Indication: OTITIS MEDIA
     Dosage: 500 MG;Q24H;IV
     Route: 042
     Dates: start: 20050101, end: 20050301
  2. CUBICIN [Suspect]
     Indication: STAPHYLOCOCCAL INFECTION
     Dosage: 500 MG;Q24H;IV
     Route: 042
     Dates: start: 20050101, end: 20050301
  3. CEFEPIME [Concomitant]
  4. METHOTREXATE [Concomitant]

REACTIONS (3)
  - EOSINOPHILIA [None]
  - PRURITUS [None]
  - RASH MACULO-PAPULAR [None]
